FAERS Safety Report 15830851 (Version 1)
Quarter: 2018Q4

REPORT INFORMATION
  Report Type: Spontaneous
  Country: US (occurrence: US)
  Receive Date: 20181218
  Receipt Date: 20181218
  Transmission Date: 20190205
  Serious: No
  Sender: FDA-Public Use
  Company Number: None

PATIENT
  Age: 67 Year
  Sex: Male
  Weight: 77.11 kg

DRUGS (1)
  1. FUNGI NAIL TOE AND FOOT [Suspect]
     Active Substance: UNDECYLENIC ACID
     Indication: ONYCHOMYCOSIS
     Dosage: ?          OTHER ROUTE:APPLY TO NAILS?
     Dates: start: 201706, end: 20171129

REACTIONS (2)
  - Hypoaesthesia [None]
  - Pain in extremity [None]

NARRATIVE: CASE EVENT DATE: 20180606
